FAERS Safety Report 20210837 (Version 12)
Quarter: 2022Q3

REPORT INFORMATION
  Report Type: Report from Study
  Country: CA (occurrence: CA)
  Receive Date: 20211221
  Receipt Date: 20220802
  Transmission Date: 20221027
  Serious: Yes (Hospitalization, Other)
  Sender: FDA-Public Use
  Company Number: CA-BIOGEN-2021BI01079469

PATIENT
  Age: 46 Year
  Sex: Female

DRUGS (21)
  1. TYSABRI [Suspect]
     Active Substance: NATALIZUMAB
     Indication: Multiple sclerosis
     Route: 050
     Dates: start: 20120224, end: 20201006
  2. TYSABRI [Suspect]
     Active Substance: NATALIZUMAB
     Route: 050
     Dates: start: 20201006, end: 20211101
  3. TYSABRI [Suspect]
     Active Substance: NATALIZUMAB
     Route: 050
     Dates: start: 20211220
  4. TYSABRI [Suspect]
     Active Substance: NATALIZUMAB
     Route: 050
     Dates: start: 20120224
  5. TYSABRI [Suspect]
     Active Substance: NATALIZUMAB
     Route: 050
     Dates: start: 20201006
  6. TYSABRI [Suspect]
     Active Substance: NATALIZUMAB
     Route: 050
     Dates: start: 20120224, end: 20201006
  7. TYSABRI [Suspect]
     Active Substance: NATALIZUMAB
     Route: 050
  8. TYSABRI [Suspect]
     Active Substance: NATALIZUMAB
     Route: 050
     Dates: start: 20201006, end: 20211101
  9. TYSABRI [Suspect]
     Active Substance: NATALIZUMAB
     Route: 050
     Dates: start: 20201006, end: 20211219
  10. TYSABRI [Suspect]
     Active Substance: NATALIZUMAB
     Route: 050
     Dates: start: 20120224, end: 20201006
  11. TYSABRI [Suspect]
     Active Substance: NATALIZUMAB
     Route: 050
     Dates: start: 20201006, end: 20211101
  12. TYSABRI [Suspect]
     Active Substance: NATALIZUMAB
     Route: 050
     Dates: start: 20211220
  13. TYSABRI [Suspect]
     Active Substance: NATALIZUMAB
     Route: 050
     Dates: start: 20120224
  14. DALFAMPRIDINE [Suspect]
     Active Substance: DALFAMPRIDINE
     Indication: Multiple sclerosis
     Route: 050
     Dates: start: 20130528
  15. DALFAMPRIDINE [Suspect]
     Active Substance: DALFAMPRIDINE
     Route: 050
  16. FENTANYL [Suspect]
     Active Substance: FENTANYL
     Indication: Product used for unknown indication
     Route: 050
  17. DILAUDID [Concomitant]
     Active Substance: HYDROMORPHONE HYDROCHLORIDE
     Indication: Premedication
     Route: 050
  18. Naproxim [Concomitant]
     Indication: Premedication
     Route: 050
  19. PANTOPRAZOLE SODIUM [Concomitant]
     Active Substance: PANTOPRAZOLE SODIUM
     Indication: Premedication
     Route: 050
  20. DILAUDID [Concomitant]
     Active Substance: HYDROMORPHONE HYDROCHLORIDE
     Indication: Premedication
     Route: 050
  21. TYLENOL [Concomitant]
     Active Substance: ACETAMINOPHEN
     Indication: Premedication
     Route: 050

REACTIONS (71)
  - Postoperative wound infection [Not Recovered/Not Resolved]
  - Uterine polyp [Unknown]
  - Post procedural haemorrhage [Unknown]
  - Hepatitis [Unknown]
  - Neurogenic shock [Unknown]
  - Suicidal ideation [Unknown]
  - Dysuria [Unknown]
  - Chills [Unknown]
  - Bronchitis [Unknown]
  - Pneumonia [Unknown]
  - Prescribed underdose [Not Recovered/Not Resolved]
  - Genital injury [Unknown]
  - Post procedural complication [Unknown]
  - Musculoskeletal chest pain [Unknown]
  - Scratch [Unknown]
  - Inflammation [Unknown]
  - Vaginal discharge [Unknown]
  - Procedural pain [Unknown]
  - Mental impairment [Unknown]
  - Vaginal odour [Not Recovered/Not Resolved]
  - Osteoarthritis [Unknown]
  - Heavy menstrual bleeding [Not Recovered/Not Resolved]
  - Peroneal nerve palsy [Unknown]
  - Fall [Recovered/Resolved]
  - Depression [Unknown]
  - Dysstasia [Unknown]
  - Dyspepsia [Unknown]
  - Constipation [Unknown]
  - Malaise [Unknown]
  - Psychiatric symptom [Unknown]
  - Dysmenorrhoea [Unknown]
  - Bone pain [Unknown]
  - Asthenia [Unknown]
  - Amnesia [Unknown]
  - Somnolence [Unknown]
  - Euphoric mood [Unknown]
  - Anxiety [Unknown]
  - Dysphemia [Unknown]
  - Incoherent [Unknown]
  - Crying [Not Recovered/Not Resolved]
  - Impaired healing [Unknown]
  - Uterine disorder [Unknown]
  - Procedural haemorrhage [Unknown]
  - Post-traumatic stress disorder [Unknown]
  - Stress [Unknown]
  - Vaginal haemorrhage [Unknown]
  - Back pain [Unknown]
  - Hypotension [Unknown]
  - Decreased appetite [Unknown]
  - Abdominal discomfort [Unknown]
  - Haemorrhage [Unknown]
  - Gait disturbance [Unknown]
  - Hypersomnia [Unknown]
  - Inflammatory marker increased [Not Recovered/Not Resolved]
  - Laboratory test abnormal [Unknown]
  - Liver disorder [Unknown]
  - Blister [Unknown]
  - Infected dermal cyst [Unknown]
  - Dacryostenosis acquired [Unknown]
  - Genital lesion [Unknown]
  - Mood swings [Unknown]
  - Acne [Unknown]
  - Urinary tract infection [Unknown]
  - Depressed mood [Unknown]
  - Fatigue [Not Recovered/Not Resolved]
  - Anaemia [Not Recovered/Not Resolved]
  - Pain [Unknown]
  - Weight decreased [Unknown]
  - Thermal burn [Unknown]
  - Cholelithiasis [Unknown]
  - Herpes virus infection [Unknown]

NARRATIVE: CASE EVENT DATE: 20211220
